FAERS Safety Report 5908157-8 (Version None)
Quarter: 2008Q4

REPORT INFORMATION
  Report Type: 
  Country: None (occurrence: None)
  Receive Date: 20081003
  Receipt Date: 20080925
  Transmission Date: 20090506
  Serious: Yes (Life-Threatening, Hospitalization)
  Sender: FDA-Public Use
  Company Number: DK-PFIZER INC-2008081315

PATIENT
  Sex: Male
  Weight: 76 kg

DRUGS (2)
  1. SALAZOPYRIN [Suspect]
     Indication: RHEUMATOID ARTHRITIS
     Route: 048
     Dates: start: 20080403, end: 20080710
  2. DICLOFENAC [Concomitant]
     Route: 048
     Dates: end: 20080710

REACTIONS (3)
  - AGRANULOCYTOSIS [None]
  - PYREXIA [None]
  - TONSILLITIS [None]
